FAERS Safety Report 10232624 (Version 3)
Quarter: 2014Q3

REPORT INFORMATION
  Report Type: Spontaneous
  Country: US (occurrence: US)
  Receive Date: 20140612
  Receipt Date: 20140814
  Transmission Date: 20150326
  Serious: Yes (Hospitalization, Other)
  Sender: FDA-Public Use
  Company Number: US-BAYER-2014-086449

PATIENT
  Age: 27 Year
  Sex: Female
  Weight: 58.96 kg

DRUGS (1)
  1. MIRENA [Suspect]
     Active Substance: LEVONORGESTREL
     Indication: CONTRACEPTION
     Dosage: 20 MCG/24HR, CONT
     Route: 015
     Dates: start: 20100913, end: 20131007

REACTIONS (14)
  - Abdominal pain lower [None]
  - Uterine perforation [None]
  - Post procedural complication [None]
  - Weight decreased [None]
  - Post procedural haemorrhage [None]
  - Infection [None]
  - Device dislocation [None]
  - Abdominal symptom [None]
  - Procedural pain [Not Recovered/Not Resolved]
  - Anxiety [None]
  - Medical device discomfort [None]
  - Depression [None]
  - Injury [None]
  - Device issue [None]

NARRATIVE: CASE EVENT DATE: 201009
